FAERS Safety Report 5759586-7 (Version None)
Quarter: 2008Q2

REPORT INFORMATION
  Report Type: 
  Country: None (occurrence: None)
  Receive Date: 20080605
  Receipt Date: 20080527
  Transmission Date: 20081010
  Serious: Yes (Other)
  Sender: FDA-Public Use
  Company Number: US-BAYER-200812048BCC

PATIENT
  Age: 77 Year
  Sex: Male
  Weight: 107 kg

DRUGS (4)
  1. ASPIRIN [Suspect]
     Indication: PROPHYLAXIS
     Dosage: TOTAL DAILY DOSE: 81 MG  UNIT DOSE: 81 MG
     Route: 048
     Dates: start: 20050101, end: 20080527
  2. ONE A DAY MEN'S 50 PLUS ADVANTAGE [Suspect]
     Indication: VITAMIN SUPPLEMENTATION
     Dosage: AS USED: 1 DF  UNIT DOSE: 1 DF
     Route: 048
     Dates: start: 20071101, end: 20080501
  3. FERROUS SULFATE TAB [Concomitant]
  4. SYNTHROID [Concomitant]

REACTIONS (4)
  - ENZYME ABNORMALITY [None]
  - FAECES DISCOLOURED [None]
  - HERNIA REPAIR [None]
  - STOMACH DISCOMFORT [None]
